FAERS Safety Report 4282375-X (Version None)
Quarter: 2004Q1

REPORT INFORMATION
  Report Type: 
  Country: None (occurrence: None)
  Receive Date: 20040130
  Receipt Date: 20031106
  Transmission Date: 20041129
  Serious: Yes (Other)
  Sender: FDA-Public Use
  Company Number: WAES 0311USA00691

PATIENT
  Age: 62 Year
  Sex: Male

DRUGS (3)
  1. [THERAPY UNSPECIFIED] [Concomitant]
  2. ZOCOR [Suspect]
     Indication: BLOOD CHOLESTEROL INCREASED
     Route: 048
  3. ZOCOR [Suspect]
     Route: 048
     Dates: end: 20031023

REACTIONS (2)
  - DIARRHOEA [None]
  - GALLBLADDER DISORDER [None]
